FAERS Safety Report 9515461 (Version 1)
Quarter: 2013Q3

REPORT INFORMATION
  Report Type: Spontaneous
  Country: HU (occurrence: HU)
  Receive Date: 20130911
  Receipt Date: 20130911
  Transmission Date: 20140515
  Serious: Yes (Hospitalization, Other)
  Sender: FDA-Public Use
  Company Number: HU-JNJFOC-20130904688

PATIENT
  Age: 73 Year
  Sex: Female

DRUGS (13)
  1. XARELTO [Suspect]
     Indication: EMBOLISM VENOUS
     Route: 048
     Dates: start: 201305
  2. XARELTO [Suspect]
     Indication: DEEP VEIN THROMBOSIS
     Route: 048
     Dates: start: 201305
  3. COVEREX [Concomitant]
     Route: 048
  4. BISOPROLOL [Concomitant]
     Route: 048
  5. ATORVA [Concomitant]
     Route: 048
  6. SYNCUMAR [Concomitant]
     Indication: DEEP VEIN THROMBOSIS
     Route: 065
     Dates: start: 201304
  7. MADOPAR [Concomitant]
     Route: 065
  8. REQUIP [Concomitant]
     Route: 065
  9. KALIUM [POTASSIUM] [Concomitant]
     Route: 065
  10. ACTRAPID [Concomitant]
     Route: 065
  11. COSOPT [Concomitant]
     Route: 065
  12. ASPIRIN PROTECT [Concomitant]
     Route: 048
  13. NOACID [Concomitant]
     Route: 048

REACTIONS (6)
  - Ischaemic stroke [Recovering/Resolving]
  - Myocardial infarction [Recovering/Resolving]
  - Bronchopneumonia [Unknown]
  - Clostridium difficile infection [Unknown]
  - Diarrhoea [Unknown]
  - Pyrexia [Unknown]
